FAERS Safety Report 4875553-X (Version None)
Quarter: 2005Q4

REPORT INFORMATION
  Report Type: 
  Country: None (occurrence: None)
  Receive Date: 20051209
  Receipt Date: 20050518
  Transmission Date: 20060501
  Serious: Yes (Death)
  Sender: FDA-Public Use
  Company Number: USA-2005-0019824

PATIENT
  Age: 44 Year
  Sex: Male

DRUGS (5)
  1. OXYCONTIN [Suspect]
     Dosage: INT
     Route: 042
  2. MORPHINE SULFATE [Suspect]
  3. METHADONE [Suspect]
  4. LORTAB [Suspect]
  5. CLONAZEPAM [Suspect]

REACTIONS (1)
  - MULTIPLE DRUG OVERDOSE ACCIDENTAL [None]
